FAERS Safety Report 20891942 (Version 2)
Quarter: 2022Q2

REPORT INFORMATION
  Report Type: Report from Study
  Country: MX (occurrence: MX)
  Receive Date: 20220530
  Receipt Date: 20220603
  Transmission Date: 20220721
  Serious: Yes (Other)
  Sender: FDA-Public Use
  Company Number: MX-NOVARTISPH-PHHY2018MX077128

PATIENT
  Sex: Female
  Weight: 64 kg

DRUGS (5)
  1. METFORMIN HYDROCHLORIDE\VILDAGLIPTIN [Suspect]
     Active Substance: METFORMIN HYDROCHLORIDE\VILDAGLIPTIN
     Indication: Diabetes mellitus
     Dosage: 1 DF (METFORMIN 500MG, VILDAGLIPTIN 50MG), QD
     Route: 048
  2. METFORMIN HYDROCHLORIDE\VILDAGLIPTIN [Suspect]
     Active Substance: METFORMIN HYDROCHLORIDE\VILDAGLIPTIN
     Dosage: 550/.5MG, BY MOUTH
     Route: 048
     Dates: start: 2011
  3. METFORMIN HYDROCHLORIDE\VILDAGLIPTIN [Suspect]
     Active Substance: METFORMIN HYDROCHLORIDE\VILDAGLIPTIN
     Dosage: 2 DF (METFORMIN 500MG, VILDAGLIPTIN 50MG), QD
     Route: 048
     Dates: start: 20180507
  4. METFORMIN HYDROCHLORIDE\VILDAGLIPTIN [Suspect]
     Active Substance: METFORMIN HYDROCHLORIDE\VILDAGLIPTIN
     Dosage: 1 DOSAGE FORM (50/850MG), IN THE MORNING AND AT NIGHT, BY MOUTH
     Route: 048
  5. LOSARTAN [Concomitant]
     Active Substance: LOSARTAN
     Indication: Hypertension
     Dosage: 0.5 DF, BID (24 YEARS AGO)
     Route: 065

REACTIONS (7)
  - Diabetic metabolic decompensation [Unknown]
  - Blood glucose increased [Recovered/Resolved]
  - Condition aggravated [Recovered/Resolved]
  - Blindness [Not Recovered/Not Resolved]
  - Cataract [Unknown]
  - Hypothyroidism [Unknown]
  - Blood pressure increased [Unknown]

NARRATIVE: CASE EVENT DATE: 20110101
